FAERS Safety Report 7532488-1 (Version None)
Quarter: 2011Q2

REPORT INFORMATION
  Report Type: 
  Country: None (occurrence: None)
  Receive Date: 20110526
  Receipt Date: 20110518
  Transmission Date: 20111010
  Serious: Yes (Life-Threatening, Other)
  Sender: FDA-Public Use
  Company Number: AECAN201000404

PATIENT
  Age: 73 Year
  Sex: Male
  Weight: 86 kg

DRUGS (5)
  1. GAMUNEX [Suspect]
  2. GAMUNEX [Suspect]
     Indication: MULTIPLE MYELOMA
     Dosage: 30 GM, IV
     Route: 042
     Dates: start: 20090901
  3. GAMUNEX [Suspect]
  4. FRAGMIN [Concomitant]
  5. ASPIRIN [Concomitant]

REACTIONS (4)
  - RESUSCITATION [None]
  - CYANOSIS [None]
  - ANAPHYLACTIC REACTION [None]
  - TREMOR [None]
